FAERS Safety Report 5227465-X (Version None)
Quarter: 2007Q1

REPORT INFORMATION
  Report Type: 
  Country: None (occurrence: None)
  Receive Date: 20070202
  Receipt Date: 20070126
  Transmission Date: 20070707
  Serious: No
  Sender: FDA-Public Use
  Company Number: FR-ELI_LILLY_AND_COMPANY-FR200610004006

PATIENT
  Age: 63 Year
  Sex: Male
  Weight: 65 kg

DRUGS (6)
  1. SOLUPRED [Concomitant]
     Dosage: 60 MG, DAILY (1/D)
     Route: 048
  2. OXYCONTIN [Concomitant]
     Dosage: 40 MG, DAILY (1/D)
     Route: 048
  3. ALIMTA [Suspect]
     Indication: LUNG NEOPLASM MALIGNANT
     Dosage: 500 MG/M2, OTHER
     Route: 042
     Dates: start: 20060710
  4. FOLIC ACID [Concomitant]
     Indication: VITAMIN SUPPLEMENTATION
     Route: 048
  5. VITAMIN B-12 [Concomitant]
     Indication: VITAMIN SUPPLEMENTATION
     Route: 030
  6. DEXAMETHASONE [Concomitant]
     Indication: PROPHYLAXIS
     Route: 048

REACTIONS (2)
  - PENILE ULCERATION [None]
  - RASH PAPULAR [None]
